FAERS Safety Report 7047915-6 (Version None)
Quarter: 2010Q4

REPORT INFORMATION
  Report Type: 
  Country: None (occurrence: None)
  Receive Date: 20101014
  Receipt Date: 20101014
  Transmission Date: 20110411
  Serious: Yes (Hospitalization)
  Sender: FDA-Public Use
  Company Number: None

PATIENT
  Sex: Female
  Weight: 75.7 kg

DRUGS (2)
  1. CISPLATIN [Suspect]
     Dosage: 135 MG
     Dates: end: 20100920
  2. ETOPOSIDE [Suspect]
     Dosage: 540 MG
     Dates: end: 20100922

REACTIONS (7)
  - ARTHRALGIA [None]
  - CELLULITIS [None]
  - CYST RUPTURE [None]
  - DERMAL CYST [None]
  - DYSPNOEA [None]
  - PAIN [None]
  - PAIN IN EXTREMITY [None]
